FAERS Safety Report 10009583 (Version 2)
Quarter: 2014Q1

REPORT INFORMATION
  Report Type: Spontaneous
  Country: US (occurrence: US)
  Receive Date: 20140312
  Receipt Date: 20140312
  Transmission Date: 20141002
  Serious: Yes (Other)
  Sender: FDA-Public Use
  Company Number: US-INCYTE CORPORATION-2012IN001477

PATIENT
  Age: 74 Year
  Sex: Female

DRUGS (19)
  1. JAKAFI [Suspect]
     Indication: MYELOFIBROSIS
     Dosage: 20 MG, BID
     Dates: start: 201202, end: 20120321
  2. JAKAFI [Suspect]
     Dosage: 5 MG, BID
     Route: 048
     Dates: start: 20120322, end: 20120329
  3. JAKAFI [Suspect]
     Dosage: 5 MG, QOD
     Dates: start: 20120330, end: 20120417
  4. JAKAFI [Suspect]
     Dosage: 5 MG, QD
     Route: 048
     Dates: start: 20120418, end: 20120510
  5. JAKAFI [Suspect]
     Dosage: 10 MG, QD
     Route: 048
     Dates: start: 20120511, end: 2012
  6. JAKAFI [Suspect]
     Dosage: 5 MG, BID
     Route: 048
     Dates: start: 2012, end: 20120626
  7. JAKAFI [Suspect]
     Dosage: 10 MG, QAM + 5 MG, QPM
     Route: 048
     Dates: start: 20120627, end: 20120826
  8. JAKAFI [Suspect]
     Dosage: 10 MG, BID
     Route: 048
     Dates: start: 20120827
  9. DRONEDARONE [Concomitant]
  10. WARFARIN [Concomitant]
  11. VITAMIN D [Concomitant]
  12. TOPROL XL [Concomitant]
  13. FISH OIL [Concomitant]
  14. MULTIVITAMINS [Concomitant]
  15. CALTRATE + D [Concomitant]
  16. ASPIRIN [Concomitant]
     Dosage: 81 UNK, UNK
  17. HYDROCODONE [Concomitant]
  18. NITROGLYCERIN [Concomitant]
  19. MOMETASONE FUROATE [Concomitant]

REACTIONS (4)
  - Platelet count decreased [Recovered/Resolved]
  - Arthralgia [Unknown]
  - Pancytopenia [Recovered/Resolved]
  - Herpes zoster [Unknown]
